FAERS Safety Report 6845489 (Version 2)
Quarter: 2015Q2

REPORT INFORMATION
  Report Type: Spontaneous
  Country: US (occurrence: US)
  Receive Date: 20081212
  Receipt Date: 20150617
  Transmission Date: 20150821
  Serious: No
  Sender: FDA-Public Use
  Company Number: US-AMGEN-KDL285394

PATIENT
  Age: 49 Year
  Sex: Female

DRUGS (1)
  1. ENBREL [Suspect]
     Active Substance: ETANERCEPT
     Indication: RHEUMATOID ARTHRITIS
     Dosage: 50 MG, WEEKLY
     Route: 065
     Dates: start: 200707

REACTIONS (3)
  - Rubber sensitivity [Not Recovered/Not Resolved]
  - Injection site rash [Recovered/Resolved]
  - Urticaria [Recovered/Resolved]
